FAERS Safety Report 8251529-X (Version None)
Quarter: 2012Q2

REPORT INFORMATION
  Report Type: 
  Country: None (occurrence: None)
  Receive Date: 20120402
  Receipt Date: 20120326
  Transmission Date: 20120825
  Serious: Yes (Other)
  Sender: FDA-Public Use
  Company Number: US-BAYER-2012-029413

PATIENT
  Age: 21 Year
  Sex: Female

DRUGS (1)
  1. MIRENA [Suspect]
     Indication: CONTRACEPTION
     Dosage: 20 MCG/24HR, CONT
     Route: 015
     Dates: start: 20101110, end: 20120313

REACTIONS (8)
  - MENSTRUATION DELAYED [None]
  - DEVICE DISLOCATION [None]
  - CERVIX DISORDER [None]
  - MENSTRUATION IRREGULAR [None]
  - ABDOMINAL PAIN [None]
  - PYREXIA [None]
  - HYPOMENORRHOEA [None]
  - POST PROCEDURAL HAEMORRHAGE [None]
